FAERS Safety Report 8378000-9 (Version None)
Quarter: 2012Q2

REPORT INFORMATION
  Report Type: 
  Country: None (occurrence: None)
  Receive Date: 20120521
  Receipt Date: 20120503
  Transmission Date: 20120825
  Serious: Yes (Hospitalization)
  Sender: FDA-Public Use
  Company Number: DSJ-2012-08053

PATIENT
  Age: 64 Year
  Sex: Female

DRUGS (5)
  1. MEDICINES FOR HYPERCHOLESTEROLEMIA [Concomitant]
  2. MEDICINES FOR HYPERTRIGLYCERIDEMIA [Concomitant]
  3. BENICAR HCT [Suspect]
     Indication: HYPERTENSION
     Dosage: 20/12.5 MG (1 IN 1 D), PER ORAL
     Route: 048
     Dates: start: 20071101
  4. MEDICINES FOR DIABETES [Concomitant]
  5. MEDICINES FOR HYPOTHYROIDISM [Concomitant]

REACTIONS (2)
  - ANGIOPLASTY [None]
  - INFARCTION [None]
